FAERS Safety Report 10762363 (Version 1)
Quarter: 2015Q1

REPORT INFORMATION
  Report Type: Spontaneous
  Country: US (occurrence: None)
  Receive Date: 20150129
  Receipt Date: 20150129
  Transmission Date: 20150721
  Serious: Yes (Other)
  Sender: FDA-Public Use
  Company Number: 107854

PATIENT
  Age: 61 Year
  Sex: Female
  Weight: 59 kg

DRUGS (1)
  1. KEPPRA [Suspect]
     Active Substance: LEVETIRACETAM
     Indication: PARTIAL SEIZURES
     Dosage: 105731, MAR/2015
     Dates: start: 201308

REACTIONS (3)
  - Panic attack [None]
  - Aura [None]
  - Partial seizures [None]

NARRATIVE: CASE EVENT DATE: 2013
